FAERS Safety Report 21886692 (Version 2)
Quarter: 2023Q1

REPORT INFORMATION
  Report Type: Report from Study
  Country: GB (occurrence: GB)
  Receive Date: 20230119
  Receipt Date: 20230124
  Transmission Date: 20230417
  Serious: Yes (Other)
  Sender: FDA-Public Use
  Company Number: GB-002147023-NVSC2023GB007469

PATIENT
  Sex: Male

DRUGS (1)
  1. COSENTYX [Suspect]
     Active Substance: SECUKINUMAB
     Indication: Ankylosing spondylitis
     Dosage: 150 MG, QMO
     Route: 065

REACTIONS (4)
  - Loss of consciousness [Recovering/Resolving]
  - Concussion [Recovering/Resolving]
  - Viral infection [Recovered/Resolved]
  - Dyspnoea [Recovering/Resolving]
